FAERS Safety Report 17439613 (Version 1)
Quarter: 2020Q1

REPORT INFORMATION
  Report Type: Spontaneous
  Country: US (occurrence: US)
  Receive Date: 20200220
  Receipt Date: 20200220
  Transmission Date: 20200409
  Serious: No
  Sender: FDA-Public Use
  Company Number: US-ALLERGAN-1907016US

PATIENT
  Sex: Male

DRUGS (1)
  1. GELNIQUE [Suspect]
     Active Substance: OXYBUTYNIN
     Indication: HYPERTONIC BLADDER
     Dosage: UNK
     Route: 065

REACTIONS (2)
  - Bladder spasm [Unknown]
  - Product dose omission [Unknown]
